FAERS Safety Report 4624405-9 (Version None)
Quarter: 2005Q1

REPORT INFORMATION
  Report Type: 
  Country: None (occurrence: None)
  Receive Date: 20050330
  Receipt Date: 20050330
  Transmission Date: 20050727
  Serious: Yes (Other)
  Sender: FDA-Public Use
  Company Number: None

PATIENT
  Age: 30 Year
  Sex: Female
  Weight: 58.9676 kg

DRUGS (1)
  1. MIRENA [Suspect]
     Indication: CONTRACEPTION
     Dates: start: 20030826, end: 20031219

REACTIONS (7)
  - ABDOMINAL DISTENSION [None]
  - ACNE [None]
  - IRRITABILITY [None]
  - METRORRHAGIA [None]
  - MOOD SWINGS [None]
  - PRURITUS [None]
  - WEIGHT INCREASED [None]
